FAERS Safety Report 6861417-9 (Version None)
Quarter: 2010Q3

REPORT INFORMATION
  Report Type: 
  Country: None (occurrence: None)
  Receive Date: 20100720
  Receipt Date: 20100713
  Transmission Date: 20110219
  Serious: Yes (Life-Threatening, Hospitalization)
  Sender: FDA-Public Use
  Company Number: IT-AMGEN-QUU421890

PATIENT
  Sex: Female

DRUGS (7)
  1. ARANESP [Suspect]
     Indication: PRODUCT USED FOR UNKNOWN INDICATION
     Route: 058
     Dates: start: 20100201
  2. ALLOPURINOL [Concomitant]
     Route: 048
  3. ASCRIPTIN [Concomitant]
     Route: 048
  4. COTAREG [Concomitant]
  5. PROPAFENONE HCL [Concomitant]
     Route: 048
  6. NORVASC [Concomitant]
     Route: 048
  7. ZOLOFT [Concomitant]
     Route: 048

REACTIONS (1)
  - ACUTE PULMONARY OEDEMA [None]
